FAERS Safety Report 25740557 (Version 1)
Quarter: 2025Q3

REPORT INFORMATION
  Report Type: Spontaneous
  Country: US (occurrence: None)
  Receive Date: 20250828
  Receipt Date: 20250828
  Transmission Date: 20251020
  Serious: No
  Sender: FDA-CTU
  Company Number: None

PATIENT
  Age: 88 Year
  Sex: Female
  Weight: 66.6 kg

DRUGS (2)
  1. DEFINITY [Suspect]
     Active Substance: PERFLUTREN
     Indication: Bradycardia
     Route: 042
  2. DEFINITY [Suspect]
     Active Substance: PERFLUTREN
     Indication: Ejection fraction

REACTIONS (6)
  - Contrast media reaction [None]
  - Back pain [None]
  - Nausea [None]
  - Anxiety [None]
  - Fear [None]
  - Contrast media allergy [None]

NARRATIVE: CASE EVENT DATE: 20250828
